FAERS Safety Report 12184668 (Version 2)
Quarter: 2016Q2

REPORT INFORMATION
  Report Type: Spontaneous
  Country: JP (occurrence: JP)
  Receive Date: 20160316
  Receipt Date: 20160415
  Transmission Date: 20160815
  Serious: Yes (Other)
  Sender: FDA-Public Use
  Company Number: JP-JNJFOC-20160306938

PATIENT

DRUGS (2)
  1. NIZORAL [Suspect]
     Active Substance: KETOCONAZOLE
     Indication: SEBORRHOEIC DERMATITIS
     Route: 061
  2. ELIQUIS [Concomitant]
     Active Substance: APIXABAN
     Route: 048

REACTIONS (5)
  - Pigmentation disorder [Unknown]
  - Off label use [Unknown]
  - Drug effect incomplete [Unknown]
  - Renal impairment [Unknown]
  - Inappropriate schedule of drug administration [Unknown]
